FAERS Safety Report 16269828 (Version 1)
Quarter: 2019Q2

REPORT INFORMATION
  Report Type: Spontaneous
  Country: US (occurrence: US)
  Receive Date: 20190502
  Receipt Date: 20190502
  Transmission Date: 20190711
  Serious: Yes (Hospitalization)
  Sender: FDA-Public Use
  Company Number: None

PATIENT
  Age: 47 Year
  Sex: Female

DRUGS (12)
  1. LACTULOSE SOLUTION 10GM/15ML [Concomitant]
     Dates: start: 20190329
  2. PANTOPRAZOLE 40MG TABLETS [Concomitant]
     Active Substance: PANTOPRAZOLE
     Dates: start: 20181218
  3. ONDANSETRON 8MG TABLETS [Concomitant]
     Active Substance: ONDANSETRON HYDROCHLORIDE
     Dates: start: 20190423
  4. GABAPENTIN 100MG CAPSULES [Concomitant]
     Active Substance: GABAPENTIN
     Dates: start: 20181119
  5. FLOVENT HFA 44MCG [Concomitant]
     Dates: start: 20190325
  6. MORPHINE 15MG ER TABLETS [Concomitant]
     Dates: start: 20190409
  7. VENTOLIN HFA [Concomitant]
     Active Substance: ALBUTEROL SULFATE
     Dates: start: 20190429
  8. CAPECITABINE. [Suspect]
     Active Substance: CAPECITABINE
     Indication: CHOLANGIOCARCINOMA
     Dosage: ?          OTHER FREQUENCY:BID DAYS 1-14;?
     Route: 048
  9. FUROSEMIDE 80MG TABLETS [Concomitant]
     Active Substance: FUROSEMIDE SODIUM
  10. TAMSULOSIN 0.4MG CAPSULES [Concomitant]
     Active Substance: TAMSULOSIN
     Dates: start: 20190428
  11. MIDODRINE 5MG TABLETS [Concomitant]
     Dates: start: 20190326
  12. SMZ/TMP DS 800-160 TABLETS [Concomitant]
     Dates: start: 20190427

REACTIONS (1)
  - Blood sodium decreased [None]

NARRATIVE: CASE EVENT DATE: 20190430
